FAERS Safety Report 6238958-0 (Version None)
Quarter: 2009Q2

REPORT INFORMATION
  Report Type: 
  Country: None (occurrence: None)
  Receive Date: 20090622
  Receipt Date: 20090610
  Transmission Date: 20091009
  Serious: Yes (Other)
  Sender: FDA-Public Use
  Company Number: PHHY2009BR21989

PATIENT
  Age: 46 Year
  Sex: Female
  Weight: 60 kg

DRUGS (2)
  1. FEMARA [Suspect]
     Indication: LUNG NEOPLASM
     Dosage: 2.5 MG, 1 TABLET/DAY
     Route: 048
  2. FEMARA [Suspect]
     Dosage: 2.5 MG, 1 TABLET/DAY
     Route: 048
     Dates: start: 20090608

REACTIONS (1)
  - LUNG DISORDER [None]
